FAERS Safety Report 7500348-8 (Version None)
Quarter: 2011Q2

REPORT INFORMATION
  Report Type: 
  Country: None (occurrence: None)
  Receive Date: 20110524
  Receipt Date: 20110413
  Transmission Date: 20111010
  Serious: Yes (Hospitalization, Other)
  Sender: FDA-Public Use
  Company Number: DE-BAYER-2011-013424

PATIENT
  Age: 37 Year
  Sex: Female
  Weight: 56 kg

DRUGS (2)
  1. MIRENA [Suspect]
     Dosage: 20 MCG/24HR, CONT
     Dates: end: 20110201
  2. MIRENA [Suspect]
     Indication: PRODUCT USED FOR UNKNOWN INDICATION
     Dosage: 20 ?G/D, CONT
     Route: 015
     Dates: start: 20050501

REACTIONS (14)
  - SKIN DISORDER [None]
  - HORMONE LEVEL ABNORMAL [None]
  - DEPRESSION [None]
  - NERVOUSNESS [None]
  - ANXIETY [None]
  - LIBIDO DECREASED [None]
  - SUICIDE ATTEMPT [None]
  - MUSCLE TIGHTNESS [None]
  - ALOPECIA [None]
  - WEIGHT INCREASED [None]
  - MINERAL METABOLISM DISORDER [None]
  - BACK PAIN [None]
  - PERSONALITY CHANGE [None]
  - PANIC ATTACK [None]
